FAERS Safety Report 8964750 (Version 1)
Quarter: 2012Q4

REPORT INFORMATION
  Report Type: 
  Country: JP (occurrence: JP)
  Receive Date: 20121213
  Receipt Date: 20121213
  Transmission Date: 20130627
  Serious: Yes (Death)
  Sender: FDA-Public Use
  Company Number: JP-ROCHE-512000

PATIENT

DRUGS (3)
  1. TRETINOIN [Suspect]
     Indication: ACUTE PROMYELOCYTIC LEUKAEMIA
     Route: 048
  2. IDARUBICIN [Concomitant]
     Indication: ACUTE PROMYELOCYTIC LEUKAEMIA
     Route: 042
  3. CYTARABINE [Concomitant]
     Indication: ACUTE PROMYELOCYTIC LEUKAEMIA
     Route: 042

REACTIONS (4)
  - Retinoic acid syndrome [Fatal]
  - Infection [Fatal]
  - Haemorrhage [Fatal]
  - Death [Fatal]
